FAERS Safety Report 4985735-4 (Version None)
Quarter: 2006Q2

REPORT INFORMATION
  Report Type: 
  Country: None (occurrence: None)
  Receive Date: 20060428
  Receipt Date: 20060328
  Transmission Date: 20061013
  Serious: Yes (Death, Hospitalization)
  Sender: FDA-Public Use
  Company Number: PHBS2006JP04676

PATIENT
  Age: 40 Year
  Sex: Female

DRUGS (5)
  1. TEGRETOL [Suspect]
     Dosage: 3600 MG, ONCE/SINGLE
     Route: 048
  2. SILECE [Concomitant]
     Dosage: 20 MG, ONCE/SINGLE
     Route: 048
  3. HALCION [Concomitant]
     Dosage: 2.25 MG, ONCE/SINGLE
     Route: 048
  4. LEXOTAN [Concomitant]
     Dosage: 10 MG, ONCE/SINGLE
     Route: 048
  5. ALCOHOL [Suspect]

REACTIONS (3)
  - ALCOHOL INTERACTION [None]
  - DEATH [None]
  - OVERDOSE [None]
